FAERS Safety Report 8515077-1 (Version None)
Quarter: 2012Q3

REPORT INFORMATION
  Report Type: 
  Country: None (occurrence: None)
  Receive Date: 20120717
  Receipt Date: 20120710
  Transmission Date: 20120928
  Serious: Yes (Death, Hospitalization)
  Sender: FDA-Public Use
  Company Number: FR-ASTRAZENECA-2006CG01516

PATIENT
  Age: 757 Month
  Sex: Female
  Weight: 100 kg

DRUGS (2)
  1. ARIMIDEX [Suspect]
     Route: 048
     Dates: start: 20060201
  2. ARIMIDEX [Suspect]
     Indication: BREAST CANCER FEMALE
     Route: 048
     Dates: start: 19960201, end: 20060101

REACTIONS (4)
  - ENDOCARDITIS [None]
  - CARDIAC DEATH [None]
  - RENAL FAILURE ACUTE [None]
  - THROMBOCYTOPENIA [None]
